FAERS Safety Report 18562331 (Version 1)
Quarter: 2020Q4

REPORT INFORMATION
  Report Type: Spontaneous
  Country: GB (occurrence: GB)
  Receive Date: 20201130
  Receipt Date: 20201130
  Transmission Date: 20210114
  Serious: Yes (Death, Hospitalization, Other)
  Sender: FDA-Public Use
  Company Number: GB-AUROBINDO-AUR-APL-2020-058607

PATIENT
  Age: 79 Year
  Sex: Female

DRUGS (8)
  1. FUROSEMIDE. [Suspect]
     Active Substance: FUROSEMIDE
     Indication: PRODUCT USED FOR UNKNOWN INDICATION
     Dosage: 80 MILLIGRAM, ONCE A DAY
     Route: 065
  2. FENOFIBRATE. [Suspect]
     Active Substance: FENOFIBRATE
     Indication: PRODUCT USED FOR UNKNOWN INDICATION
     Dosage: 160 MILLIGRAM, ONCE A DAY
     Route: 065
  3. AMLODIPINE [Suspect]
     Active Substance: AMLODIPINE BESYLATE
     Indication: PRODUCT USED FOR UNKNOWN INDICATION
     Dosage: 10 MILLIGRAM, ONCE A DAY
     Route: 065
  4. CLOPIDOGREL [Suspect]
     Active Substance: CLOPIDOGREL BISULFATE
     Indication: PRODUCT USED FOR UNKNOWN INDICATION
     Dosage: 75 MILLIGRAM, ONCE A DAY
     Route: 065
  5. RAMIPRIL. [Suspect]
     Active Substance: RAMIPRIL
     Indication: PRODUCT USED FOR UNKNOWN INDICATION
     Dosage: 10 MILLIGRAM, ONCE A DAY
     Route: 065
  6. WARFARIN [Suspect]
     Active Substance: WARFARIN
     Indication: PRODUCT USED FOR UNKNOWN INDICATION
     Dosage: 1 MILLIGRAM, ONCE A DAY
     Route: 065
  7. BISOPROLOL [Suspect]
     Active Substance: BISOPROLOL
     Indication: PRODUCT USED FOR UNKNOWN INDICATION
     Dosage: 10 MILLIGRAM, ONCE A DAY
     Route: 065
  8. LETROZOLE. [Suspect]
     Active Substance: LETROZOLE
     Indication: PRODUCT USED FOR UNKNOWN INDICATION
     Dosage: 7.5 MILLIGRAM, ONCE A DAY
     Route: 065

REACTIONS (40)
  - Hepatic steatosis [Unknown]
  - Dehydration [Unknown]
  - Cholestasis [Unknown]
  - Confusional state [Unknown]
  - Pericardial effusion [Unknown]
  - Lethargy [Unknown]
  - Mucosal dryness [Unknown]
  - Nephrosclerosis [Unknown]
  - Urine output decreased [Unknown]
  - Abnormal loss of weight [Unknown]
  - Hypotension [Unknown]
  - International normalised ratio increased [Unknown]
  - Ocular icterus [Unknown]
  - Congestive hepatopathy [Unknown]
  - Nausea [Unknown]
  - Decreased appetite [Unknown]
  - Aortic arteriosclerosis [Unknown]
  - Kidney fibrosis [Unknown]
  - Epistaxis [Unknown]
  - Hepatic fibrosis [Unknown]
  - Abdominal distension [Unknown]
  - Taste disorder [Unknown]
  - Ascites [Unknown]
  - Sepsis [Unknown]
  - Skin weeping [Unknown]
  - Hepatorenal failure [Fatal]
  - Dilatation ventricular [Unknown]
  - Change of bowel habit [Unknown]
  - Acute kidney injury [Unknown]
  - Pleural effusion [Unknown]
  - Hepatic necrosis [Unknown]
  - Haemolysis [Unknown]
  - Orthopnoea [Unknown]
  - Jaundice [Unknown]
  - Thirst [Unknown]
  - Oedema peripheral [Unknown]
  - Asthenia [Unknown]
  - Dyspnoea [Unknown]
  - Petechiae [Unknown]
  - Pulmonary oedema [Unknown]

NARRATIVE: CASE EVENT DATE: 202002
